FAERS Safety Report 17266807 (Version 1)
Quarter: 2020Q1

REPORT INFORMATION
  Report Type: Spontaneous
  Country: US (occurrence: US)
  Receive Date: 20200113
  Receipt Date: 20200113
  Transmission Date: 20200409
  Serious: Yes (Hospitalization, Other)
  Sender: FDA-Public Use
  Company Number: None

PATIENT
  Age: 28 Year
  Sex: Female
  Weight: 96.75 kg

DRUGS (4)
  1. TAYTULLA [Suspect]
     Active Substance: ETHINYL ESTRADIOL\NORETHINDRONE ACETATE
     Indication: POLYCYSTIC OVARIES
     Dosage: ?          QUANTITY:2 CAPSULE(S);?
     Route: 048
  2. HCTZ 12.5MG CAPS [Concomitant]
     Active Substance: HYDROCHLOROTHIAZIDE
  3. FAMOTIDINE. [Concomitant]
     Active Substance: FAMOTIDINE
  4. TYLENOL [Concomitant]
     Active Substance: ACETAMINOPHEN

REACTIONS (1)
  - Idiopathic intracranial hypertension [None]

NARRATIVE: CASE EVENT DATE: 20180509
